FAERS Safety Report 23077460 (Version 2)
Quarter: 2023Q4

REPORT INFORMATION
  Report Type: Report from Study
  Country: US (occurrence: US)
  Receive Date: 20231018
  Receipt Date: 20231115
  Transmission Date: 20240110
  Serious: Yes (Hospitalization)
  Sender: FDA-Public Use
  Company Number: US-JNJFOC-20231036735

PATIENT
  Age: 3 Decade
  Sex: Male
  Weight: 72.64 kg

DRUGS (5)
  1. INFLIXIMAB [Suspect]
     Active Substance: INFLIXIMAB
     Indication: Inflammatory bowel disease
     Dosage: DATE OF LAST ADMINISTRATION RECORDED WAS ON 24-SEP-2014
     Route: 041
     Dates: start: 20080805
  2. INFLIXIMAB [Suspect]
     Active Substance: INFLIXIMAB
     Dosage: DATE OF LAST ADMINISTRATION RECORDED WAS ON 02-FEB-2015
     Route: 041
     Dates: start: 2014
  3. INFLIXIMAB [Suspect]
     Active Substance: INFLIXIMAB
     Dosage: DATE OF LAST ADMINISTRATION RECORDED WAS ON 09-SEP-2020
     Route: 041
     Dates: start: 2015
  4. INFLIXIMAB [Suspect]
     Active Substance: INFLIXIMAB
     Route: 041
     Dates: start: 2020, end: 20230417
  5. HUMIRA [Concomitant]
     Active Substance: ADALIMUMAB
     Indication: Product used for unknown indication
     Dosage: DATE OF LAST ADMINISTRATION RECORDED WAS ON 15-APR-2023
     Route: 065
     Dates: start: 2023

REACTIONS (1)
  - Pyoderma gangrenosum [Recovered/Resolved]

NARRATIVE: CASE EVENT DATE: 20230509
